FAERS Safety Report 6134604-5 (Version None)
Quarter: 2009Q1

REPORT INFORMATION
  Report Type: 
  Country: None (occurrence: None)
  Receive Date: 20090327
  Receipt Date: 20090318
  Transmission Date: 20090719
  Serious: Yes (Death)
  Sender: FDA-Public Use
  Company Number: BR-ROCHE-622547

PATIENT
  Sex: Female
  Weight: 40 kg

DRUGS (4)
  1. CAPECITABINE [Suspect]
     Route: 048
     Dates: start: 20070901, end: 20080101
  2. CAPECITABINE [Suspect]
     Route: 048
     Dates: start: 20080101, end: 20080601
  3. METADON [Concomitant]
     Indication: CANCER PAIN
     Route: 048
     Dates: start: 20070901
  4. DIPYRONE [Concomitant]

REACTIONS (7)
  - AMNESIA [None]
  - DISEASE PROGRESSION [None]
  - ESCHAR [None]
  - NEUTROPHIL TOXIC GRANULATION PRESENT [None]
  - PALMAR-PLANTAR ERYTHRODYSAESTHESIA SYNDROME [None]
  - THROMBOCYTOPENIA [None]
  - URINARY INCONTINENCE [None]
